FAERS Safety Report 18931551 (Version 1)
Quarter: 2021Q1

REPORT INFORMATION
  Report Type: Other
  Country: US (occurrence: US)
  Receive Date: 20210224
  Receipt Date: 20210224
  Transmission Date: 20210420
  Serious: Yes (Death, Other)
  Sender: FDA-Public Use
  Company Number: US-INTERCEPT-PM2020002613

PATIENT
  Age: 71 Year
  Sex: Female

DRUGS (4)
  1. OCALIVA [Suspect]
     Active Substance: OBETICHOLIC ACID
     Indication: PRIMARY BILIARY CHOLANGITIS
     Dosage: 5 MILLIGRAM, QD
     Route: 048
     Dates: start: 20180121, end: 20201209
  2. LASIX [Concomitant]
     Active Substance: FUROSEMIDE
     Dosage: UNK, QD
  3. ALDACTONE [Suspect]
     Active Substance: SPIRONOLACTONE
     Indication: PRODUCT USED FOR UNKNOWN INDICATION
     Dosage: UNK, QD
  4. URSODIOL. [Concomitant]
     Active Substance: URSODIOL

REACTIONS (9)
  - Blood alkaline phosphatase abnormal [Recovering/Resolving]
  - Death [Fatal]
  - Hepatic cirrhosis [Unknown]
  - Cholelithiasis [Unknown]
  - Oedema peripheral [Recovering/Resolving]
  - Ascites [Unknown]
  - Laboratory test abnormal [Unknown]
  - Platelet count abnormal [Recovering/Resolving]
  - Alpha 1 foetoprotein abnormal [Unknown]

NARRATIVE: CASE EVENT DATE: 20200827
